FAERS Safety Report 7813640-4 (Version None)
Quarter: 2011Q4

REPORT INFORMATION
  Report Type: 
  Country: None (occurrence: None)
  Receive Date: 20111014
  Receipt Date: 20080103
  Transmission Date: 20120403
  Serious: No
  Sender: FDA-Public Use
  Company Number: 2008BI000487

PATIENT
  Sex: Female

DRUGS (1)
  1. TYSABRI [Suspect]
     Indication: MULTIPLE SCLEROSIS
     Route: 042
     Dates: start: 20070718

REACTIONS (14)
  - APHONIA [None]
  - INSOMNIA [None]
  - PNEUMONIA [None]
  - STRESS [None]
  - MIGRAINE [None]
  - MENOPAUSAL SYMPTOMS [None]
  - COUGH [None]
  - DEHYDRATION [None]
  - NASOPHARYNGITIS [None]
  - FATIGUE [None]
  - INFECTION SUSCEPTIBILITY INCREASED [None]
  - MULTIPLE SCLEROSIS RELAPSE [None]
  - FALL [None]
  - NEURALGIA [None]
